FAERS Safety Report 9671280 (Version 3)
Quarter: 2013Q4

REPORT INFORMATION
  Report Type: Spontaneous
  Country: JP (occurrence: JP)
  Receive Date: 20131106
  Receipt Date: 20131210
  Transmission Date: 20140711
  Serious: Yes (Death, Life-Threatening, Hospitalization)
  Sender: FDA-Public Use
  Company Number: JP-PFIZER INC-2013312042

PATIENT
  Age: 75 Year
  Sex: Male
  Weight: 82 kg

DRUGS (7)
  1. INLYTA [Suspect]
     Indication: METASTATIC RENAL CELL CARCINOMA
     Dosage: 5 MG, 2X/DAY
     Route: 048
     Dates: start: 20130814, end: 20130908
  2. INLYTA [Suspect]
     Dosage: 7 MG, 2X/DAY
     Route: 048
     Dates: start: 20130909, end: 20130918
  3. INLYTA [Suspect]
     Dosage: 5 MG, 2X/DAY
     Route: 048
     Dates: start: 20130919, end: 20130930
  4. AMLODIPINE OD [Concomitant]
     Indication: HYPERTENSION
     Dosage: 5 MG, DAILY
     Route: 048
  5. AMLODIPINE OD [Concomitant]
     Dosage: 7.5 MG, 1X/DAY
     Route: 048
     Dates: start: 20130909, end: 20131007
  6. FUROSEMIDE [Concomitant]
     Indication: OEDEMA
     Dosage: 20 MG, 1X/DAY
     Route: 048
     Dates: start: 20130919
  7. TAKEPRON OD [Concomitant]
     Indication: GASTRITIS
     Dosage: 30 MG, 1X/DAY
     Route: 048
     Dates: start: 20131007, end: 20131021

REACTIONS (6)
  - Disease progression [Fatal]
  - Metastatic renal cell carcinoma [Fatal]
  - Hepatic failure [Fatal]
  - Intra-abdominal haemorrhage [Recovered/Resolved with Sequelae]
  - Nephrotic syndrome [Recovering/Resolving]
  - Hypertension [Recovered/Resolved]
